FAERS Safety Report 19113742 (Version 5)
Quarter: 2021Q2

REPORT INFORMATION
  Report Type: Report from Study
  Country: US (occurrence: US)
  Receive Date: 20210409
  Receipt Date: 20210621
  Transmission Date: 20210717
  Serious: No
  Sender: FDA-Public Use
  Company Number: US-BIOVITRUM-2021US3478

PATIENT
  Age: 1 Year
  Sex: Male

DRUGS (6)
  1. NEXIUM [Concomitant]
     Active Substance: ESOMEPRAZOLE MAGNESIUM
  2. ADVIL [Concomitant]
     Active Substance: IBUPROFEN
  3. KINERET [Suspect]
     Active Substance: ANAKINRA
     Indication: JOINT STIFFNESS
     Route: 058
     Dates: start: 20210323
  4. KINERET [Suspect]
     Active Substance: ANAKINRA
     Route: 058
     Dates: start: 20210326
  5. KINERET [Suspect]
     Active Substance: ANAKINRA
     Route: 058
     Dates: start: 20210329
  6. FAMOTIDINE. [Concomitant]
     Active Substance: FAMOTIDINE

REACTIONS (8)
  - Injection site reaction [Unknown]
  - Nasopharyngitis [Unknown]
  - Off label use [Recovered/Resolved]
  - Product dose omission issue [Unknown]
  - Swelling [Recovered/Resolved]
  - Viral infection [Recovered/Resolved]
  - Erythema [Recovered/Resolved]
  - Urticaria [Recovered/Resolved]

NARRATIVE: CASE EVENT DATE: 20210323
